FAERS Safety Report 6345102-8 (Version None)
Quarter: 2009Q3

REPORT INFORMATION
  Report Type: 
  Country: None (occurrence: None)
  Receive Date: 20090909
  Receipt Date: 20070921
  Transmission Date: 20100115
  Serious: Yes (Hospitalization, Other)
  Sender: FDA-Public Use
  Company Number: US-ASTRAZENECA-2006UW17483

PATIENT
  Age: 17753 Day
  Sex: Female
  Weight: 63 kg

DRUGS (23)
  1. SEROQUEL [Suspect]
     Indication: BIPOLAR DISORDER
     Route: 048
     Dates: start: 20020320
  2. SEROQUEL [Suspect]
     Indication: ANXIETY
     Route: 048
     Dates: start: 20020320
  3. SEROQUEL [Suspect]
     Dosage: 25 MG TO 300 MG BID
     Route: 048
     Dates: start: 20020320, end: 20041019
  4. SEROQUEL [Suspect]
     Dosage: 25 MG TO 300 MG BID
     Route: 048
     Dates: start: 20020320, end: 20041019
  5. SEROQUEL [Suspect]
     Route: 048
     Dates: start: 20041217, end: 20051203
  6. SEROQUEL [Suspect]
     Route: 048
     Dates: start: 20041217, end: 20051203
  7. SEROQUEL [Suspect]
     Route: 048
     Dates: start: 20051229, end: 20060505
  8. SEROQUEL [Suspect]
     Route: 048
     Dates: start: 20051229, end: 20060505
  9. HALDOL [Concomitant]
     Dates: start: 20030209, end: 20040831
  10. TOPAMAX [Concomitant]
     Dates: start: 20041019
  11. PROTONIX [Concomitant]
     Indication: OESOPHAGITIS
     Dates: start: 20051130
  12. EFFEXOR XR [Concomitant]
     Indication: BIPOLAR DISORDER
     Dosage: 75 MG - 150 MG
     Dates: start: 20020320
  13. EFFEXOR XR [Concomitant]
     Indication: DEPRESSION
     Dosage: 75 MG - 150 MG
     Dates: start: 20020320
  14. AMBIEN [Concomitant]
     Dates: start: 19991116
  15. AVANDIA [Concomitant]
     Indication: DIABETES MELLITUS
     Dates: start: 20051130
  16. TRICOR [Concomitant]
     Indication: HYPERTRIGLYCERIDAEMIA
     Dates: start: 20051130
  17. CRESTOR [Concomitant]
     Indication: HYPERCHOLESTEROLAEMIA
     Dates: start: 20051130
  18. VIOKASE [Concomitant]
     Indication: DYSPEPSIA
     Dosage: ONE DAILY
     Dates: start: 20051130
  19. LYRICA [Concomitant]
     Indication: NEURALGIA
     Dates: start: 20051130
  20. NEURONTIN [Concomitant]
     Dates: start: 20051130
  21. ACIPHEX [Concomitant]
     Dates: start: 20041019
  22. DAYPRO [Concomitant]
     Dates: start: 20041019
  23. GEODON [Concomitant]
     Dates: start: 20041019

REACTIONS (11)
  - ANGIOPATHY [None]
  - DIABETES MELLITUS [None]
  - DIABETIC COMA [None]
  - DIABETIC KETOACIDOSIS [None]
  - PANCREATITIS [None]
  - PROTEINURIA [None]
  - RENAL FAILURE [None]
  - RENAL FAILURE ACUTE [None]
  - RENAL FAILURE CHRONIC [None]
  - RENAL TRANSPLANT [None]
  - TYPE 2 DIABETES MELLITUS [None]
